FAERS Safety Report 7514869-5 (Version None)
Quarter: 2011Q2

REPORT INFORMATION
  Report Type: 
  Country: None (occurrence: None)
  Receive Date: 20110601
  Receipt Date: 20110518
  Transmission Date: 20111010
  Serious: Yes (Hospitalization)
  Sender: FDA-Public Use
  Company Number: CA-JNJFOC-20100900730

PATIENT
  Sex: Male
  Weight: 53.52 kg

DRUGS (11)
  1. REMICADE [Suspect]
     Dates: start: 20100708
  2. PANTOLOC [Concomitant]
  3. TRANDOLAPRIL [Concomitant]
  4. FER-IN-SOL [Concomitant]
  5. ATIVAN [Concomitant]
  6. HYDROCHLOROTHIAZIDE [Concomitant]
  7. REMICADE [Suspect]
     Indication: CROHN'S DISEASE
     Dates: start: 20080911
  8. IMURAN [Concomitant]
  9. ASACOL [Concomitant]
  10. ASPIRIN [Concomitant]
  11. ACTONEL [Concomitant]

REACTIONS (1)
  - INTESTINAL OBSTRUCTION [None]
